FAERS Safety Report 8946761 (Version 2)
Quarter: 2013Q1

REPORT INFORMATION
  Report Type: Spontaneous
  Country: US (occurrence: US)
  Receive Date: 20121205
  Receipt Date: 20130110
  Transmission Date: 20140127
  Serious: No
  Sender: FDA-Public Use
  Company Number: US-009507513-1212USA001735

PATIENT
  Sex: Male
  Weight: 102.4 kg

DRUGS (4)
  1. CLARITIN-D 24 HOUR [Suspect]
     Indication: SNEEZING
     Dosage: 10 MG, ONCE
     Route: 048
     Dates: start: 201211, end: 201212
  2. CLARITIN-D 24 HOUR [Suspect]
     Indication: RHINORRHOEA
  3. CLARITIN-D 24 HOUR [Suspect]
     Indication: MEDICAL OBSERVATION
  4. NORTRIPTYLINE [Concomitant]
     Indication: NEURALGIA
     Dosage: UNK, UNKNOWN

REACTIONS (1)
  - Condition aggravated [Unknown]
